FAERS Safety Report 12886310 (Version 1)
Quarter: 2016Q4

REPORT INFORMATION
  Report Type: Spontaneous
  Country: US (occurrence: US)
  Receive Date: 20161026
  Receipt Date: 20161026
  Transmission Date: 20170207
  Serious: No
  Sender: FDA-Public Use
  Company Number: US-PFIZER INC-2016490442

PATIENT
  Sex: Female

DRUGS (5)
  1. CODEINE [Suspect]
     Active Substance: CODEINE
     Dosage: UNK
  2. ASA [Suspect]
     Active Substance: ASPIRIN
     Dosage: UNK
  3. FLU SHOT [Suspect]
     Active Substance: INFLUENZA VIRUS VACCINE
     Indication: IMMUNISATION
     Dosage: UNK
  4. LIDOCAINE HCL [Suspect]
     Active Substance: LIDOCAINE HYDROCHLORIDE
     Dosage: UNK
  5. TETANUS TOXOID ADSORBED [Suspect]
     Active Substance: CLOSTRIDIUM TETANI TOXOID ANTIGEN (FORMALDEHYDE INACTIVATED)
     Indication: IMMUNISATION
     Dosage: UNK

REACTIONS (1)
  - Drug hypersensitivity [Unknown]
